FAERS Safety Report 11897215 (Version 3)
Quarter: 2016Q1

REPORT INFORMATION
  Report Type: Spontaneous
  Country: US (occurrence: US)
  Receive Date: 20160108
  Receipt Date: 20160202
  Transmission Date: 20160526
  Serious: No
  Sender: FDA-Public Use
  Company Number: US-AMGEN-USASP2016000221

PATIENT
  Age: 77 Year
  Sex: Female
  Weight: 69.39 kg

DRUGS (1)
  1. ENBREL [Suspect]
     Active Substance: ETANERCEPT
     Indication: RHEUMATOID ARTHRITIS
     Dosage: 50 MG, QWK
     Route: 058
     Dates: start: 20150929

REACTIONS (5)
  - Wrong technique in product usage process [Unknown]
  - Influenza [Unknown]
  - Nasopharyngitis [Unknown]
  - Injection site pain [Unknown]
  - Device malfunction [Recovered/Resolved]
